FAERS Safety Report 8041581-9 (Version None)
Quarter: 2012Q1

REPORT INFORMATION
  Report Type: 
  Country: None (occurrence: None)
  Receive Date: 20120112
  Receipt Date: 20120109
  Transmission Date: 20120608
  Serious: Yes (Other)
  Sender: FDA-Public Use
  Company Number: US-PFIZER INC-2010006417

PATIENT
  Sex: Female

DRUGS (13)
  1. ACETAMINOPHEN W/ CODEINE [Concomitant]
     Indication: ANALGESIC THERAPY
     Dosage: UNK
     Dates: start: 20040614, end: 20090801
  2. TRAMADOL [Concomitant]
     Indication: ANALGESIC THERAPY
     Dosage: UNK
     Dates: start: 20060625, end: 20090801
  3. VALTREX [Concomitant]
     Indication: HERPES VIRUS INFECTION
     Dosage: UNK
     Dates: start: 20050901, end: 20090801
  4. NAPROXEN [Concomitant]
     Indication: ANALGESIC THERAPY
     Dosage: UNK
     Dates: start: 20051025, end: 20090801
  5. MEDROXYPROGESTERONE [Concomitant]
     Indication: CONTRACEPTION
     Dosage: UNK
     Dates: start: 20071112, end: 20090801
  6. SU-TUSS HD [Concomitant]
     Indication: COUGH
     Dosage: UNK
     Dates: start: 20080225, end: 20080301
  7. SU-TUSS HD [Concomitant]
     Indication: NASAL CONGESTION
  8. METRONIDAZOLE [Concomitant]
     Indication: VAGINITIS BACTERIAL
     Dosage: UNK
     Dates: start: 20031029, end: 20090801
  9. TRAZODONE [Concomitant]
     Indication: DEPRESSION
     Dosage: UNK
     Dates: start: 20041008, end: 20080801
  10. CHANTIX [Suspect]
     Indication: SMOKING CESSATION THERAPY
     Dosage: STRATER PACK
     Dates: start: 20080225, end: 20080325
  11. PAROXETINE [Concomitant]
     Indication: DEPRESSION
     Dosage: UNK
     Dates: start: 20071006, end: 20090801
  12. ACETAMINOPHEN AND HYDROCODONE BITARTRATE [Concomitant]
     Indication: ANALGESIC THERAPY
     Dosage: UNK
     Dates: start: 20040614, end: 20090801
  13. ZITHROMAX [Concomitant]
     Indication: BACTERIAL INFECTION
     Dosage: UNK
     Dates: start: 20051025, end: 20090801

REACTIONS (4)
  - ANXIETY [None]
  - INSOMNIA [None]
  - DEPRESSION [None]
  - SUICIDAL IDEATION [None]
